FAERS Safety Report 21910048 (Version 2)
Quarter: 2023Q1

REPORT INFORMATION
  Report Type: Report from Study
  Country: US (occurrence: US)
  Receive Date: 20230125
  Receipt Date: 20230321
  Transmission Date: 20230417
  Serious: Yes (Hospitalization, Other)
  Sender: FDA-Public Use
  Company Number: US-VANDA PHARMACEUTICALS, INC-2023TASUS006449

PATIENT
  Age: 47 Year
  Sex: Male
  Weight: 113.38 kg

DRUGS (30)
  1. HETLIOZ [Suspect]
     Active Substance: TASIMELTEON
     Indication: Non-24-hour sleep-wake disorder
     Dosage: 20 MILLIGRAM, QHS
     Route: 048
     Dates: start: 20210129
  2. LASIX [Concomitant]
     Active Substance: FUROSEMIDE
     Indication: Product used for unknown indication
  3. FENOFIBRATE [Concomitant]
     Active Substance: FENOFIBRATE
     Indication: Product used for unknown indication
     Dosage: 120 MILLIGRAM, QD
     Route: 048
  4. FENOFIBRATE [Concomitant]
     Active Substance: FENOFIBRATE
     Dosage: 160 MILLIGRAM, QD, TAKE 1 TABLET BY MOUTH EVERY DAY
     Route: 048
  5. NEOMYCIN AND POLYMYXIN B SULFATES, BACITRACIN ZINC AND HYDROCORTISONE [Concomitant]
     Active Substance: BACITRACIN ZINC\HYDROCORTISONE\NEOMYCIN SULFATE\POLYMYXIN B SULFATE
     Indication: Product used for unknown indication
     Dosage: 3.5 MILLIGRAM PER GRAM, QD, APPLY TO RIGHT 3 TIMES DAILY AND TO LEFT EYE 1 TIME DAILY
  6. NEOMYCIN AND POLYMYXIN B SULFATES, BACITRACIN ZINC AND HYDROCORTISONE [Concomitant]
     Active Substance: BACITRACIN ZINC\HYDROCORTISONE\NEOMYCIN SULFATE\POLYMYXIN B SULFATE
     Dosage: 10000 UNITED STATES PHARMACOPEIA UNIT, QD, APPLY TO RIGHT 3 TIMES DAILY AND TO LEFT EYE 1 TIME DAILY
  7. VITAMIN D NOS [Concomitant]
     Active Substance: VITAMIN D NOS
     Indication: Product used for unknown indication
  8. FISH OIL [Concomitant]
     Active Substance: FISH OIL
     Indication: Product used for unknown indication
     Dosage: 1200 MILLIGRAM, QD
     Route: 048
  9. FISH OIL [Concomitant]
     Active Substance: FISH OIL
     Dosage: 1 GRAM, QD, TAKE 1 CAPSULE BY MOUTH EVERY DAY
     Route: 048
  10. ATENOLOL [Concomitant]
     Active Substance: ATENOLOL
     Indication: Product used for unknown indication
     Dosage: 100 PERCENT, QD, POWDER
     Route: 048
  11. MELATONIN [Concomitant]
     Active Substance: MELATONIN
     Indication: Product used for unknown indication
     Dosage: 10 MILLIGRAM, QHS, TAKE 1 TABLET BY MOUTH NIGHTLY
     Route: 048
     Dates: start: 20221117
  12. NORVASC [Concomitant]
     Active Substance: AMLODIPINE BESYLATE
     Indication: Product used for unknown indication
     Dosage: 10 MILLIGRAM, QD
     Route: 048
     Dates: start: 20220825
  13. PROVENTIL HFA [SALBUTAMOL] [Concomitant]
     Indication: Dyspnoea
     Dosage: 90 MICROGRAM, Q4H, INHALE 2 PUFFS EVERY 4 HOURS AS NEEDED
     Dates: start: 20220523
  14. PROVENTIL HFA [SALBUTAMOL] [Concomitant]
     Indication: Wheezing
  15. NUVIGIL [Concomitant]
     Active Substance: ARMODAFINIL
     Indication: Product used for unknown indication
     Dosage: 150 MILLIGRAM, QD
     Route: 048
  16. NUVIGIL [Concomitant]
     Active Substance: ARMODAFINIL
     Dosage: 250 MILLIGRAM, QD, TAKE 1 TABLET BY MOUTH DAILY
     Route: 048
     Dates: start: 20221117
  17. TENORMIN [Concomitant]
     Active Substance: ATENOLOL
     Indication: Product used for unknown indication
     Dosage: 100 MILLIGRAM, QD
     Route: 048
     Dates: start: 20221127, end: 20230222
  18. ASTELIN [Concomitant]
     Active Substance: AZELASTINE HYDROCHLORIDE
     Indication: Nasal congestion
     Dosage: 137 MICROGRAM, QHS, TWO SPRAYS INTO EACH NOSTRIL 30 MINUTES BEFORE BEDTIME. IF AWOKEN AND HAS NASAL
     Dates: start: 20221117
  19. VITAMIN D3 [Concomitant]
     Active Substance: CHOLECALCIFEROL
     Indication: Product used for unknown indication
     Dosage: UNK, QD
     Dates: start: 20170502
  20. TRIGLIDE [Concomitant]
     Active Substance: FENOFIBRATE
     Indication: Product used for unknown indication
     Dosage: 160 MILLIGRAM, QD
     Route: 048
     Dates: start: 20220918, end: 20230222
  21. PROZAC [Concomitant]
     Active Substance: FLUOXETINE HYDROCHLORIDE
     Indication: Product used for unknown indication
     Dosage: 40 MILLIGRAM, QD
     Route: 048
     Dates: start: 20221220, end: 20230222
  22. EMGALITY [Concomitant]
     Active Substance: GALCANEZUMAB-GNLM
     Indication: Product used for unknown indication
     Dosage: 120 MILLIGRAM, INJECT 120 MG UNDER THE SKIN EVERY 30 DAYS
     Route: 058
     Dates: start: 20221219
  23. HYDRODIURIL [Concomitant]
     Active Substance: HYDROCHLOROTHIAZIDE
     Indication: Product used for unknown indication
     Dosage: 25 MILLIGRAM, QD, TAKE 1 TABLET BY MOUTH DAILY
     Route: 048
     Dates: start: 20230104, end: 20230222
  24. MAXITROL [Concomitant]
     Active Substance: DEXAMETHASONE\NEOMYCIN SULFATE\POLYMYXIN B SULFATE
     Indication: Product used for unknown indication
     Dosage: UNK, 3.5 MG/G-10000 UNIT/G-0.1%, APPLY TO RIGHT EYE 3 TIMES DAILY AND TO LEFT EYE 1 TIME DAILY
     Dates: start: 20221215
  25. LOVAZA [Concomitant]
     Active Substance: OMEGA-3-ACID ETHYL ESTERS
     Indication: Product used for unknown indication
     Dosage: 1 GRAM, QD
     Route: 048
     Dates: start: 20221125, end: 20230222
  26. WAKIX [Concomitant]
     Active Substance: PITOLISANT HYDROCHLORIDE
     Indication: Product used for unknown indication
     Dosage: 17.8 MILLIGRAM, QD, BY MOUTH EARLY MORNING BEFORE BREAKFAST
     Route: 048
  27. PROCHLORPERAZINE EDISYLATE [Concomitant]
     Active Substance: PROCHLORPERAZINE EDISYLATE
     Indication: Nausea
     Dosage: 25 MILLIGRAM, PRN, INSERT 1 SUPPOSITORY INTO THE RECTUM EVERY 12 HOURS
     Route: 054
     Dates: start: 20230104
  28. PROCHLORPERAZINE EDISYLATE [Concomitant]
     Active Substance: PROCHLORPERAZINE EDISYLATE
     Indication: Vomiting
     Dosage: 10 MILLIGRAM, PRN TID
     Route: 048
  29. MAXALT [Concomitant]
     Active Substance: RIZATRIPTAN BENZOATE
     Indication: Migraine
     Dosage: 10 MILLIGRAM, PRN, TAKE 1 TABLET BY MOUTH ONCE AS NEEDED FOR MIGRIANE MAY REPEAT IN 2 HOURS IF UNRES
     Route: 048
     Dates: start: 20220228
  30. ANDROGEL [Concomitant]
     Active Substance: TESTOSTERONE
     Indication: Product used for unknown indication
     Dosage: 1 PERCENT, QD, PLACE 0.5 PACKETS ON THE SKIN DAILY
     Route: 062
     Dates: start: 20221227

REACTIONS (3)
  - Seizure [Recovered/Resolved]
  - Middle insomnia [Recovering/Resolving]
  - Somnolence [Unknown]

NARRATIVE: CASE EVENT DATE: 20230107
